FAERS Safety Report 10213326 (Version 1)
Quarter: 2014Q2

REPORT INFORMATION
  Report Type: Spontaneous
  Country: US (occurrence: None)
  Receive Date: 20140530
  Receipt Date: 20140530
  Transmission Date: 20141212
  Serious: Yes (Hospitalization)
  Sender: FDA-Public Use
  Company Number: None

PATIENT
  Age: 71 Year
  Sex: Male
  Weight: 72.1 kg

DRUGS (2)
  1. CARBIDOPA/LEVODOPA [Suspect]
     Indication: PARKINSON^S DISEASE
     Dosage: MG, PO
     Route: 048
  2. CARBIDOPA\ENTACAPONE\LEVODOPA [Suspect]
     Indication: PARKINSON^S DISEASE
     Dosage: MG, PO
     Route: 048

REACTIONS (2)
  - Agitation [None]
  - Psychotic disorder [None]
